FAERS Safety Report 7437846-1 (Version None)
Quarter: 2011Q2

REPORT INFORMATION
  Report Type: 
  Country: None (occurrence: None)
  Receive Date: 20110426
  Receipt Date: 20110420
  Transmission Date: 20111010
  Serious: Yes (Hospitalization)
  Sender: FDA-Public Use
  Company Number: A0912573A

PATIENT
  Sex: Male

DRUGS (3)
  1. AZITHROMYCIN [Suspect]
     Indication: PNEUMONIA
     Route: 065
  2. AVODART [Suspect]
     Dosage: .5MG UNKNOWN
     Route: 065
     Dates: start: 20050505
  3. ROCEPHIN [Suspect]
     Indication: PNEUMONIA
     Route: 065

REACTIONS (2)
  - NONSPECIFIC REACTION [None]
  - PNEUMONIA [None]
